FAERS Safety Report 5146295-0 (Version None)
Quarter: 2006Q4

REPORT INFORMATION
  Report Type: 
  Country: None (occurrence: None)
  Receive Date: 20061108
  Receipt Date: 20061018
  Transmission Date: 20070319
  Serious: Yes (Hospitalization)
  Sender: FDA-Public Use
  Company Number: DE-ELI_LILLY_AND_COMPANY-DE200610003480

PATIENT
  Age: 23 Year
  Sex: Male

DRUGS (1)
  1. CYMBALTA [Suspect]
     Indication: POST-TRAUMATIC STRESS DISORDER
     Dosage: 60 MG, DAILY (1/D)
     Route: 048
     Dates: start: 20061018, end: 20061018

REACTIONS (6)
  - ANAPHYLACTIC REACTION [None]
  - CONVULSION [None]
  - DEPRESSED LEVEL OF CONSCIOUSNESS [None]
  - HOT FLUSH [None]
  - HYPERHIDROSIS [None]
  - MALAISE [None]
